FAERS Safety Report 9633463 (Version 1)
Quarter: 2013Q4

REPORT INFORMATION
  Report Type: Spontaneous
  Country: US (occurrence: None)
  Receive Date: 20131018
  Receipt Date: 20131018
  Transmission Date: 20140711
  Serious: Yes (Other)
  Sender: FDA-Public Use
  Company Number: None

PATIENT
  Age: 73 Year
  Sex: Female
  Weight: 64.86 kg

DRUGS (18)
  1. AMLODIPINE [Suspect]
     Indication: RENAL DISORDER
     Route: 048
     Dates: start: 20130911, end: 20130912
  2. LISINOPRIL [Concomitant]
  3. SPIRONOLACTONE [Concomitant]
  4. SYNTHROID [Concomitant]
  5. GABAPENTIN [Concomitant]
  6. CENTRUM [Concomitant]
  7. CA+VIT D [Concomitant]
  8. MG [Concomitant]
  9. GINKO BILOBA [Concomitant]
  10. ALPHA LAPOIC ACID [Concomitant]
  11. FISHOIL [Concomitant]
  12. BIOTIN [Concomitant]
  13. COQ10 [Concomitant]
  14. VIT B COMPLEX [Concomitant]
  15. NIACIN [Concomitant]
  16. CRANBERRY [Concomitant]
  17. BETA CAROTENE [Concomitant]
  18. REVERCATION [Concomitant]

REACTIONS (2)
  - Arrhythmia [None]
  - Heart rate irregular [None]
